FAERS Safety Report 8000975-8 (Version None)
Quarter: 2011Q4

REPORT INFORMATION
  Report Type: 
  Country: None (occurrence: None)
  Receive Date: 20111222
  Receipt Date: 20101109
  Transmission Date: 20120403
  Serious: No
  Sender: FDA-Public Use
  Company Number: US-GLAXOSMITHKLINE-A0891408A

PATIENT
  Age: 63 Year
  Sex: Female

DRUGS (4)
  1. LISINOPRIL [Concomitant]
  2. CLONIDINE [Concomitant]
  3. CARTIA XT [Concomitant]
  4. FLONASE [Suspect]
     Indication: MULTIPLE ALLERGIES
     Dosage: 2SPR PER DAY
     Route: 045
     Dates: start: 19970101, end: 20101001

REACTIONS (6)
  - NASAL INFLAMMATION [None]
  - INSOMNIA [None]
  - NON-CARDIAC CHEST PAIN [None]
  - THROAT IRRITATION [None]
  - OROPHARYNGEAL PAIN [None]
  - PRODUCT QUALITY ISSUE [None]
